FAERS Safety Report 7699057-4 (Version None)
Quarter: 2011Q3

REPORT INFORMATION
  Report Type: 
  Country: None (occurrence: None)
  Receive Date: 20110819
  Receipt Date: 20110816
  Transmission Date: 20111222
  Serious: No
  Sender: FDA-Public Use
  Company Number: US-PFIZER INC-2011190725

PATIENT

DRUGS (1)
  1. PRISTIQ [Suspect]
     Dosage: UNK
     Route: 048

REACTIONS (2)
  - NAUSEA [None]
  - DIZZINESS [None]
